FAERS Safety Report 4719511-4 (Version None)
Quarter: 2005Q3

REPORT INFORMATION
  Report Type: 
  Country: None (occurrence: None)
  Receive Date: 20050719
  Receipt Date: 20050719
  Transmission Date: 20060218
  Serious: Yes (Hospitalization)
  Sender: FDA-Public Use
  Company Number: None

PATIENT
  Sex: Male

DRUGS (13)
  1. GLYBURIDE [Suspect]
     Indication: DIABETES MELLITUS
     Dosage: 5 MG BID ORAL
     Route: 048
  2. CEFUROXIME AXETIL [Concomitant]
  3. FOLIC ACID [Concomitant]
  4. LACTULOSE [Concomitant]
  5. LORATADINE [Concomitant]
  6. MULTI-VITAMIN [Concomitant]
  7. NEOMYCIN [Concomitant]
  8. OMEPRAZOLE [Concomitant]
  9. PHYTONADIONE [Concomitant]
  10. PROPRANOLOL [Concomitant]
  11. SPIRONOLACTONE [Concomitant]
  12. CO-TRIMOXAZOLE [Concomitant]
  13. THIAMINE [Concomitant]

REACTIONS (3)
  - BLOOD GLUCOSE DECREASED [None]
  - CONVULSION [None]
  - LOSS OF CONSCIOUSNESS [None]
